FAERS Safety Report 18169870 (Version 1)
Quarter: 2020Q3

REPORT INFORMATION
  Report Type: Spontaneous
  Country: US (occurrence: US)
  Receive Date: 20200819
  Receipt Date: 20200819
  Transmission Date: 20201103
  Serious: Yes (Hospitalization)
  Sender: FDA-Public Use
  Company Number: None

PATIENT
  Age: 28 Month
  Sex: Male
  Weight: 16.6 kg

DRUGS (1)
  1. CYCLOPHOSPHAMIDE. [Suspect]
     Active Substance: CYCLOPHOSPHAMIDE
     Dates: end: 20200807

REACTIONS (7)
  - Enterocolitis [None]
  - Ascites [None]
  - Upper gastrointestinal haemorrhage [None]
  - Hypertension [None]
  - Lower gastrointestinal haemorrhage [None]
  - Coagulation test abnormal [None]
  - Respiratory failure [None]

NARRATIVE: CASE EVENT DATE: 20200810
